FAERS Safety Report 5024768-9 (Version None)
Quarter: 2006Q2

REPORT INFORMATION
  Report Type: 
  Country: None (occurrence: None)
  Receive Date: 20060427
  Receipt Date: 20050921
  Transmission Date: 20061013
  Serious: Yes (Other)
  Sender: FDA-Public Use
  Company Number: 2005037415

PATIENT
  Sex: Female

DRUGS (2)
  1. ZITHROMAX [Suspect]
     Indication: ILL-DEFINED DISORDER
     Dosage: 1 DOSE OR 2 CAPSULES, ORAL
     Route: 048
     Dates: start: 20040714, end: 20040701
  2. CONTRACEPTIVE, UNSPECIFIED (CONTRACEPTIVE, UNSPECIFIED) [Concomitant]

REACTIONS (6)
  - HYPERSENSITIVITY [None]
  - PAIN OF SKIN [None]
  - RASH [None]
  - SKIN EXFOLIATION [None]
  - SKIN SWELLING [None]
  - URTICARIA [None]
